FAERS Safety Report 23529067 (Version 2)
Quarter: 2024Q1

REPORT INFORMATION
  Report Type: Spontaneous
  Country: MX (occurrence: MX)
  Receive Date: 20240216
  Receipt Date: 20240221
  Transmission Date: 20240409
  Serious: Yes (Other)
  Sender: FDA-Public Use
  Company Number: MX-002147023-NVSC2021MX270756

PATIENT
  Sex: Male
  Weight: 92 kg

DRUGS (12)
  1. COSENTYX [Suspect]
     Active Substance: SECUKINUMAB
     Dosage: 1 DOSAGEFORM, QMO (1 PEN EACH MONTH) ROUTE OF ADMIN (FREE TEXT): INJECTION NOT OTHERWISE SPECIFIED
     Route: 065
  2. COSENTYX [Suspect]
     Active Substance: SECUKINUMAB
     Dosage: 150 MG, QMO
     Route: 058
  3. COSENTYX [Suspect]
     Active Substance: SECUKINUMAB
     Dosage: 150 MG
     Route: 065
  4. COSENTYX [Suspect]
     Active Substance: SECUKINUMAB
     Indication: Psoriatic arthropathy
     Dosage: 150 MG ROUTE OF ADMIN (FREE TEXT): INJECTION NOT OTHERWISE SPECIFIED
     Route: 065
  5. COSENTYX [Suspect]
     Active Substance: SECUKINUMAB
     Indication: Arthritis
     Dosage: 150 MG, (1ST APPLICATION TWO PENS AT THE SAME TIME FROM DE 2ND APPLICATION 1 PEN A MONTH) (START DAT
     Route: 058
     Dates: start: 2019
  6. COSENTYX [Suspect]
     Active Substance: SECUKINUMAB
     Dosage: 300 MG, QW (2 PENS 150 MG, EVERY WEEK FOR 4 WEEKS)
     Route: 058
     Dates: start: 201905
  7. METHOTREXATE [Suspect]
     Active Substance: METHOTREXATE
     Dosage: 12.5 MG, QW
     Route: 065
  8. METHOTREXATE [Suspect]
     Active Substance: METHOTREXATE
     Indication: Psoriatic arthropathy
     Dosage: 4 DOSAGE FORM, QW
     Route: 048
     Dates: start: 201905
  9. DAIVOBET [Concomitant]
     Active Substance: BETAMETHASONE DIPROPIONATE\CALCIPOTRIENE
     Indication: Product used for unknown indication
     Dosage: 1 DOSAGE FORM, QD (5MG/50MG)
     Route: 065
  10. FOLIVITAL [Concomitant]
     Indication: Decreased immune responsiveness
     Dosage: 1 DOSAGE FORM, Q2W
     Route: 048
     Dates: start: 201905
  11. METHOTREXATE [Concomitant]
     Active Substance: METHOTREXATE
     Indication: Product used for unknown indication
     Dosage: 4 DOSAGE FORM, QW
     Route: 048
  12. MALIVAL [Concomitant]
     Indication: Product used for unknown indication
     Dosage: 1 DOSAGE FORM, BID
     Route: 048

REACTIONS (20)
  - Keratoconus [Not Recovered/Not Resolved]
  - Eye swelling [Unknown]
  - Corneal thinning [Unknown]
  - Visual acuity reduced [Unknown]
  - Xerophthalmia [Unknown]
  - Dry eye [Unknown]
  - Vision blurred [Unknown]
  - Diplopia [Unknown]
  - Eye inflammation [Not Recovered/Not Resolved]
  - Discomfort [Not Recovered/Not Resolved]
  - Peripheral swelling [Unknown]
  - Arthritis [Not Recovered/Not Resolved]
  - Body height decreased [Unknown]
  - Back pain [Unknown]
  - Erythema [Unknown]
  - Skin lesion [Unknown]
  - Arthralgia [Unknown]
  - Skin plaque [Unknown]
  - Joint swelling [Unknown]
  - Product use in unapproved indication [Unknown]

NARRATIVE: CASE EVENT DATE: 20190101
